FAERS Safety Report 21897319 (Version 1)
Quarter: 2023Q1

REPORT INFORMATION
  Report Type: Spontaneous
  Country: US (occurrence: US)
  Receive Date: 20230123
  Receipt Date: 20230123
  Transmission Date: 20230417
  Serious: Yes (Other)
  Sender: FDA-Public Use
  Company Number: US-STERISCIENCE B.V.-2023-ST-000139

PATIENT
  Age: 27 Year
  Sex: Female

DRUGS (25)
  1. MIDAZOLAM [Suspect]
     Active Substance: MIDAZOLAM
     Indication: Intensive care unit delirium
     Dosage: 1-10 MG/HR CONTINUOUS INFUSION
     Route: 042
  2. ALPRAZOLAM [Suspect]
     Active Substance: ALPRAZOLAM
     Indication: Intensive care unit delirium
     Dosage: 1.25 MILLIGRAM, TID
  3. CLONAZEPAM [Suspect]
     Active Substance: CLONAZEPAM
     Indication: Intensive care unit delirium
     Dosage: UNK
  4. DEXMEDETOMIDINE [Suspect]
     Active Substance: DEXMEDETOMIDINE
     Indication: Intensive care unit delirium
     Dosage: 0.1-0.7 MCG/KG/HR
     Route: 042
  5. DIAZEPAM [Suspect]
     Active Substance: DIAZEPAM
     Indication: Intensive care unit delirium
     Dosage: 5 MILLIGRAM, TID
  6. FENTANYL [Suspect]
     Active Substance: FENTANYL
     Indication: Intensive care unit delirium
     Dosage: CONTINUOUS INFUSION
     Route: 042
  7. FENTANYL [Suspect]
     Active Substance: FENTANYL
     Indication: Sedation
     Dosage: 300 MICROGRAM, QH
     Route: 042
  8. FENTANYL [Suspect]
     Active Substance: FENTANYL
     Dosage: 200 MICROGRAM, QH PATCH
     Route: 062
  9. FENTANYL [Suspect]
     Active Substance: FENTANYL
     Dosage: 300 MICROGRAM, QH PATCH
     Route: 062
  10. GABAPENTIN [Suspect]
     Active Substance: GABAPENTIN
     Indication: Intensive care unit delirium
     Dosage: UNK
  11. HALOPERIDOL [Suspect]
     Active Substance: HALOPERIDOL
     Indication: Intensive care unit delirium
     Dosage: 6 MILLIGRAM/DAY, PRN (AS NEEDED)
  12. HYDROMORPHONE [Suspect]
     Active Substance: HYDROMORPHONE
     Indication: Intensive care unit delirium
     Dosage: 2 MILLIGRAM, EVERY 4 HOURS, PRN
     Route: 042
  13. KETAMINE [Suspect]
     Active Substance: KETAMINE
     Indication: Intensive care unit delirium
     Dosage: 1-10 MCG/KG/MIN
     Route: 042
  14. LORAZEPAM [Suspect]
     Active Substance: LORAZEPAM
     Indication: Intensive care unit delirium
     Dosage: 8 MILLIGRAM/DAY, PRN
  15. LORAZEPAM [Suspect]
     Active Substance: LORAZEPAM
     Dosage: 1-10 MG/HR CONTINUOUS INFUSION
     Route: 042
  16. METHADONE [Suspect]
     Active Substance: METHADONE HYDROCHLORIDE
     Indication: Intensive care unit delirium
     Dosage: 10 MILLIGRAM, TID
  17. OXYCODONE [Suspect]
     Active Substance: OXYCODONE
     Indication: Intensive care unit delirium
     Dosage: 20 MILLIGRAM, Q4H
  18. PROPOFOL [Suspect]
     Active Substance: PROPOFOL
     Indication: Intensive care unit delirium
     Dosage: CONTINUOUS INFUSION
     Route: 042
  19. PROPOFOL [Suspect]
     Active Substance: PROPOFOL
     Indication: Sedation
     Dosage: 50 MICROGRAM/KILOGRAM, QMINUTE
     Route: 042
  20. PROPOFOL [Suspect]
     Active Substance: PROPOFOL
     Dosage: REDUCED TO 20 MICROGRAM/KILOGRAM, QMINUTE OVER 2 HOURS
  21. QUETIAPINE [Suspect]
     Active Substance: QUETIAPINE
     Indication: Intensive care unit delirium
     Dosage: 50 MILLIGRAM, BID
  22. QUETIAPINE [Suspect]
     Active Substance: QUETIAPINE
     Dosage: 200 MILLIGRAM, BID
  23. SERTRALINE [Suspect]
     Active Substance: SERTRALINE HYDROCHLORIDE
     Indication: Intensive care unit delirium
     Dosage: UNK
  24. TRAZODONE [Suspect]
     Active Substance: TRAZODONE HYDROCHLORIDE
     Indication: Intensive care unit delirium
     Dosage: UNK
  25. VALPROIC ACID [Concomitant]
     Active Substance: VALPROIC ACID
     Indication: Intensive care unit delirium
     Dosage: 250 MILLIGRAM, BID

REACTIONS (2)
  - Posterior reversible encephalopathy syndrome [Unknown]
  - Drug ineffective for unapproved indication [Unknown]
